FAERS Safety Report 10575998 (Version 1)
Quarter: 2014Q4

REPORT INFORMATION
  Report Type: Spontaneous
  Country: US (occurrence: None)
  Receive Date: 20141110
  Receipt Date: 20141110
  Transmission Date: 20150529
  Serious: Yes (Other)
  Sender: FDA-Public Use
  Company Number: None

PATIENT
  Age: 46 Year
  Sex: Female
  Weight: 86.18 kg

DRUGS (1)
  1. OTEZLA [Suspect]
     Active Substance: APREMILAST
     Indication: PSORIATIC ARTHROPATHY
     Dosage: 1 PILL
     Route: 048
     Dates: start: 20140501, end: 20141107

REACTIONS (7)
  - Arthralgia [None]
  - Abdominal pain upper [None]
  - Tendon rupture [None]
  - Exostosis [None]
  - Headache [None]
  - Tendonitis [None]
  - Gait disturbance [None]

NARRATIVE: CASE EVENT DATE: 20141107
